FAERS Safety Report 4394943-5 (Version None)
Quarter: 2004Q3

REPORT INFORMATION
  Report Type: 
  Country: None (occurrence: None)
  Receive Date: 20040712
  Receipt Date: 20040630
  Transmission Date: 20050211
  Serious: Yes (Hospitalization)
  Sender: FDA-Public Use
  Company Number: JP-GLAXOSMITHKLINE-B0337679A

PATIENT
  Age: 64 Year
  Sex: Male

DRUGS (6)
  1. VALTREX [Suspect]
     Indication: HERPES ZOSTER
     Dosage: 1000MG PER DAY
     Route: 048
     Dates: start: 20040624, end: 20040627
  2. PANALDINE [Concomitant]
     Route: 048
  3. PRECIPITATED CALCIUM CARBONATE [Concomitant]
     Route: 048
  4. ALLOPURINOL TAB [Concomitant]
     Route: 048
  5. ONEALFA [Concomitant]
     Route: 048
  6. BLOPRESS [Concomitant]
     Route: 048

REACTIONS (2)
  - ANOREXIA [None]
  - DIZZINESS [None]
